FAERS Safety Report 9808856 (Version 3)
Quarter: 2014Q1

REPORT INFORMATION
  Report Type: Other
  Country: MQ (occurrence: MQ)
  Receive Date: 20140110
  Receipt Date: 20140123
  Transmission Date: 20141002
  Serious: Yes (Hospitalization, Congenital Anomaly, Other)
  Sender: FDA-Public Use
  Company Number: MQ-ABBVIE-92P-104-0062099-00

PATIENT
  Age: 0 Day
  Sex: Male
  Weight: 3.86 kg

DRUGS (17)
  1. DEPAKENE [Suspect]
     Indication: MATERNAL EXPOSURE TIMING UNSPECIFIED
     Route: 064
  2. DEPAKENE [Suspect]
  3. DEPAKENE [Suspect]
  4. DEPAKENE [Suspect]
  5. DEPAKENE [Suspect]
  6. DEPAKENE [Suspect]
  7. DEPAKENE [Suspect]
  8. DEPAKENE [Suspect]
  9. DEPAKENE [Suspect]
  10. DEPAKENE [Suspect]
  11. DEPAKENE [Suspect]
  12. DEPAKENE [Suspect]
  13. DEPAKENE [Suspect]
  14. DEPAKENE [Suspect]
  15. DEPAKENE [Suspect]
  16. DEPAKENE [Suspect]
  17. DEPAKENE [Suspect]

REACTIONS (21)
  - Congenital anomaly [Unknown]
  - Intestinal stenosis [Unknown]
  - Cardiac valve disease [Unknown]
  - Muscle disorder [Unknown]
  - Foetal anticonvulsant syndrome [Unknown]
  - Foetal exposure during pregnancy [Unknown]
  - Apgar score low [Unknown]
  - Dysmorphism [Unknown]
  - Hypertelorism of orbit [Unknown]
  - Congenital nose malformation [Unknown]
  - Retrognathia [Unknown]
  - Anomaly of external ear congenital [Unknown]
  - Neck deformity [Unknown]
  - Congenital hand malformation [Unknown]
  - Hypertrichosis [Unknown]
  - Cardiac murmur [Unknown]
  - Hypotonia [Unknown]
  - Hypertonia [Unknown]
  - Intestinal stenosis [Recovered/Resolved]
  - Vomiting [Unknown]
  - Breech presentation [Unknown]
